FAERS Safety Report 9682208 (Version 1)
Quarter: 2013Q4

REPORT INFORMATION
  Report Type: Spontaneous
  Country: FR (occurrence: FR)
  Receive Date: 20131111
  Receipt Date: 20131111
  Transmission Date: 20140711
  Serious: Yes (Other)
  Sender: FDA-Public Use
  Company Number: FR-JNJFOC-20131100017

PATIENT
  Age: 27 Year
  Sex: Female

DRUGS (11)
  1. ACTIFED RHUME [Suspect]
     Indication: PRODUCT USED FOR UNKNOWN INDICATION
     Route: 048
  2. ACTIFEDDUO [Suspect]
     Indication: PRODUCT USED FOR UNKNOWN INDICATION
     Route: 048
  3. ACTIFED JOUR ET NUIT [Suspect]
     Indication: PRODUCT USED FOR UNKNOWN INDICATION
     Route: 048
  4. MIFEGYNE [Suspect]
     Indication: PRODUCT USED FOR UNKNOWN INDICATION
     Route: 048
     Dates: start: 200509
  5. FENOXAZOLINE HYDROCHLORIDE [Suspect]
     Indication: PRODUCT USED FOR UNKNOWN INDICATION
     Route: 045
  6. RHINOFLUIMUCIL [Suspect]
     Indication: PRODUCT USED FOR UNKNOWN INDICATION
     Route: 045
  7. RHINADVIL [Suspect]
     Indication: PRODUCT USED FOR UNKNOWN INDICATION
     Route: 048
  8. DOLI RHUME [Suspect]
     Indication: PRODUCT USED FOR UNKNOWN INDICATION
     Route: 048
  9. HUMEX RHUME [Suspect]
     Indication: PRODUCT USED FOR UNKNOWN INDICATION
     Route: 048
  10. LUTERAN [Suspect]
     Indication: ORAL CONTRACEPTION
     Route: 048
     Dates: start: 2005, end: 2010
  11. NORGESTREL [Suspect]
     Indication: ORAL CONTRACEPTION
     Route: 048
     Dates: start: 2010

REACTIONS (2)
  - Pulmonary arterial hypertension [Not Recovered/Not Resolved]
  - Dyspnoea [Recovered/Resolved]
